FAERS Safety Report 4680025-1 (Version None)
Quarter: 2005Q2

REPORT INFORMATION
  Report Type: 
  Country: None (occurrence: None)
  Receive Date: 20050525
  Receipt Date: 20050418
  Transmission Date: 20051028
  Serious: No
  Sender: FDA-Public Use
  Company Number: SU-2005-003447

PATIENT
  Sex: Female

DRUGS (3)
  1. BENICAR [Suspect]
     Indication: BLOOD PRESSURE
     Dosage: 20 MG QD PO
     Route: 048
  2. BENICAR [Suspect]
     Indication: BLOOD PRESSURE
     Dosage: 40 MG UNK PO
     Route: 048
  3. TOPROL-XL [Concomitant]

REACTIONS (2)
  - FEELING ABNORMAL [None]
  - PLATELET COUNT DECREASED [None]
